FAERS Safety Report 18365974 (Version 1)
Quarter: 2020Q4

REPORT INFORMATION
  Report Type: Spontaneous
  Country: US (occurrence: US)
  Receive Date: 20201009
  Receipt Date: 20201009
  Transmission Date: 20210114
  Serious: Yes (Disabling)
  Sender: FDA-Public Use
  Company Number: None

PATIENT
  Age: 21 Year
  Sex: Female
  Weight: 92.25 kg

DRUGS (3)
  1. XANEX [Concomitant]
  2. KIRKLAND SIGNATURE ALLER FEX [Concomitant]
     Active Substance: FEXOFENADINE HYDROCHLORIDE
  3. XARELTO [Suspect]
     Active Substance: RIVAROXABAN
     Indication: PULMONARY EMBOLISM
     Dosage: ?          QUANTITY:1 TABLET(S);?
     Route: 048
     Dates: start: 20200727, end: 20200925

REACTIONS (6)
  - Weight increased [None]
  - Depression [None]
  - Abdominal distension [None]
  - Anxiety [None]
  - Pain [None]
  - Swelling [None]

NARRATIVE: CASE EVENT DATE: 20200907
